FAERS Safety Report 11387321 (Version 2)
Quarter: 2015Q3

REPORT INFORMATION
  Report Type: Report from Study
  Country: JP (occurrence: JP)
  Receive Date: 20150817
  Receipt Date: 20150910
  Transmission Date: 20151125
  Serious: Yes (Death)
  Sender: FDA-Public Use
  Company Number: JP-GUERBET LLC-1041128

PATIENT
  Age: 65 Year
  Sex: Male

DRUGS (5)
  1. PENTAZOCINE [Concomitant]
     Active Substance: PENTAZOCINE
     Route: 042
  2. GELPART [Concomitant]
     Active Substance: GELATIN
  3. LIPIODOL [Suspect]
     Active Substance: ETHIODIZED OIL
     Indication: THERAPEUTIC EMBOLISATION
     Route: 013
  4. HYDROXYZINE [Concomitant]
     Active Substance: HYDROXYZINE\HYDROXYZINE HYDROCHLORIDE
     Route: 042
  5. XYLOCAINE [Concomitant]
     Active Substance: LIDOCAINE HYDROCHLORIDE
     Route: 050

REACTIONS (1)
  - Hepatic failure [None]
